FAERS Safety Report 15553097 (Version 1)
Quarter: 2018Q4

REPORT INFORMATION
  Report Type: Spontaneous
  Country: FR (occurrence: FR)
  Receive Date: 20181026
  Receipt Date: 20181026
  Transmission Date: 20190205
  Serious: Yes (Life-Threatening, Hospitalization, Other)
  Sender: FDA-Public Use
  Company Number: FR-AUROBINDO-AUR-APL-2018-052305

PATIENT
  Age: 80 Year
  Sex: Male

DRUGS (3)
  1. KARDEGIC [Interacting]
     Active Substance: ASPIRIN DL-LYSINE
     Indication: MYOCARDIAL ISCHAEMIA
     Dosage: 75 MILLIGRAM, DAILY
     Route: 048
     Dates: end: 20180612
  2. CLOPIDOGREL [Suspect]
     Active Substance: CLOPIDOGREL BISULFATE
     Indication: MYOCARDIAL ISCHAEMIA
     Dosage: 75 MILLIGRAM, DAILY
     Route: 048
     Dates: end: 20180612
  3. PREVISCAN                          /00789001/ [Interacting]
     Active Substance: FLUINDIONE
     Indication: MYOCARDIAL ISCHAEMIA
     Dosage: 15 MILLIGRAM, DAILY
     Route: 048
     Dates: end: 20180612

REACTIONS (3)
  - Haemorrhagic ascites [Recovering/Resolving]
  - Traumatic haemothorax [Recovering/Resolving]
  - Cerebral haematoma [Recovering/Resolving]

NARRATIVE: CASE EVENT DATE: 20180612
